FAERS Safety Report 9804135 (Version 1)
Quarter: 2014Q1

REPORT INFORMATION
  Report Type: Spontaneous
  Country: DE (occurrence: None)
  Receive Date: 20140103
  Receipt Date: 20140103
  Transmission Date: 20141002
  Serious: Yes (Other)
  Sender: FDA-Public Use
  Company Number: KAD201312-001747

PATIENT
  Age: 52 Year
  Sex: Female

DRUGS (3)
  1. RIBAVIRIN (RIBAVIRIN) [Suspect]
     Indication: HEPATITIS C
     Dosage: 3 X 200 MG/DAY
  2. PEGYLATED INTERFERON (PEGYLATED INTERFERON) [Suspect]
     Indication: HEPATITIS C
     Dosage: 180 MCG/ WEEK
  3. TELAPREVIR (TELAPREVIR) [Suspect]
     Indication: HEPATITIS C
     Dosage: 3 CAPSULES OF 375 MG IN MORNING

REACTIONS (4)
  - Anaemia [None]
  - Leukopenia [None]
  - Thrombocytopenia [None]
  - Renal impairment [None]
